FAERS Safety Report 25071376 (Version 1)
Quarter: 2025Q1

REPORT INFORMATION
  Report Type: Spontaneous
  Country: US (occurrence: US)
  Receive Date: 20250312
  Receipt Date: 20250312
  Transmission Date: 20250408
  Serious: No
  Sender: DAIICHI
  Company Number: US-DAIICHI SANKYO, INC.-DS-2025-130285-USAA

PATIENT
  Age: 60 Year
  Sex: Female

DRUGS (1)
  1. DATROWAY [Suspect]
     Active Substance: DATOPOTAMAB DERUXTECAN-DLNK
     Indication: Triple negative breast cancer
     Route: 065
     Dates: start: 20250310

REACTIONS (2)
  - Off label use [Not Recovered/Not Resolved]
  - No adverse event [Unknown]
